FAERS Safety Report 6603075-4 (Version None)
Quarter: 2010Q1

REPORT INFORMATION
  Report Type: 
  Country: None (occurrence: None)
  Receive Date: 20100226
  Receipt Date: 20100218
  Transmission Date: 20100710
  Serious: Yes (Hospitalization, Other)
  Sender: FDA-Public Use
  Company Number: PHHY2010NO04887

PATIENT
  Sex: Female

DRUGS (7)
  1. EXELON [Suspect]
     Indication: DEMENTIA
     Dosage: 9.5 MG, QD
     Route: 062
     Dates: start: 20090624, end: 20091102
  2. MODURETIC MITE [Concomitant]
     Indication: HYPERTENSION
     Dosage: 10 MG/DAY
  3. NORVASC [Concomitant]
     Indication: HYPERTENSION
  4. SELOZOK [Concomitant]
     Indication: HYPERTENSION
     Dosage: 50 MG/DAY
  5. ALBYL-E [Concomitant]
     Dosage: 160 MG/DAY
  6. ZOLOFT [Concomitant]
     Indication: DEPRESSION
     Dosage: 50 MG/DAY
  7. PREDNISOLON [Concomitant]
     Indication: MUSCULOSKELETAL PAIN
     Dosage: 5 MG/DAY

REACTIONS (4)
  - CARDIOVASCULAR DISORDER [None]
  - EPILEPSY [None]
  - PRESYNCOPE [None]
  - SYNCOPE [None]
